FAERS Safety Report 14012230 (Version 1)
Quarter: 2017Q3

REPORT INFORMATION
  Report Type: Spontaneous
  Country: JP (occurrence: JP)
  Receive Date: 20170926
  Receipt Date: 20170926
  Transmission Date: 20171128
  Serious: Yes (Other)
  Sender: FDA-Public Use
  Company Number: JP-PFIZER INC-2017414928

PATIENT
  Age: 84 Year
  Sex: Male

DRUGS (5)
  1. CAMPTO [Suspect]
     Active Substance: IRINOTECAN
     Indication: COLON CANCER
     Dosage: UNK, 1X/DAY
     Route: 041
     Dates: start: 20170904, end: 20170904
  2. PANITUMUMAB [Concomitant]
     Active Substance: PANITUMUMAB
     Indication: COLON CANCER
     Dosage: UNK
     Dates: start: 20170904
  3. LEVOFOLINATE CALCIUM [Concomitant]
     Active Substance: LEVOLEUCOVORIN CALCIUM
     Indication: COLON CANCER
     Dosage: UNK
     Dates: start: 20170904
  4. FLUOROURACIL. [Concomitant]
     Active Substance: FLUOROURACIL
     Indication: COLON CANCER
     Dosage: UNK (BOLUS)
     Dates: start: 20170904
  5. FLUOROURACIL. [Concomitant]
     Active Substance: FLUOROURACIL
     Dosage: UNK (CONTINUOUS INFUSION)
     Dates: start: 20170904

REACTIONS (1)
  - Seizure [Recovered/Resolved]

NARRATIVE: CASE EVENT DATE: 20170904
